FAERS Safety Report 5265102-9 (Version None)
Quarter: 2007Q1

REPORT INFORMATION
  Report Type: 
  Country: None (occurrence: None)
  Receive Date: 20070314
  Receipt Date: 20070308
  Transmission Date: 20070707
  Serious: Yes (Life-Threatening, Hospitalization, Other)
  Sender: FDA-Public Use
  Company Number: HQWYE406214NOV06

PATIENT
  Sex: Male
  Weight: 69 kg

DRUGS (13)
  1. MYLOTARG [Suspect]
     Indication: ACUTE MYELOID LEUKAEMIA RECURRENT
     Route: 041
     Dates: start: 20060816, end: 20060816
  2. MYLOTARG [Suspect]
     Route: 041
     Dates: start: 20060913, end: 20060913
  3. LIPITOR [Concomitant]
     Indication: HYPERLIPIDAEMIA
     Route: 048
     Dates: start: 20031205
  4. ACTOS [Concomitant]
     Indication: DIABETES MELLITUS
     Route: 048
     Dates: start: 20030110
  5. CONSTAN [Concomitant]
     Indication: ANXIETY
     Route: 048
     Dates: start: 20060401
  6. PURSENNID [Concomitant]
     Indication: PROPHYLAXIS
     Route: 048
     Dates: start: 20060905
  7. BASEN [Concomitant]
     Indication: DIABETES MELLITUS
     Route: 048
     Dates: start: 20030110
  8. BACTRIM [Concomitant]
     Indication: PROPHYLAXIS
     Route: 048
     Dates: start: 20060822, end: 20061013
  9. POLYMYXIN B SULFATE [Concomitant]
     Indication: PROPHYLAXIS
     Route: 048
     Dates: start: 20060422, end: 20061013
  10. FUNGIZONE [Concomitant]
     Indication: PROPHYLAXIS
     Route: 048
     Dates: start: 20060822, end: 20061013
  11. GASTER [Concomitant]
     Indication: PROPHYLAXIS
     Route: 048
     Dates: start: 20060901, end: 20061013
  12. PAMILCON [Concomitant]
     Indication: DIABETES MELLITUS
     Route: 048
     Dates: start: 20030110
  13. MAGNESIUM OXIDE [Concomitant]
     Indication: CONSTIPATION
     Route: 048
     Dates: start: 20030110

REACTIONS (7)
  - AGRANULOCYTOSIS [None]
  - ORAL HERPES [None]
  - PSEUDOMONAL SEPSIS [None]
  - SEPSIS [None]
  - SERRATIA SEPSIS [None]
  - STOMATITIS [None]
  - THROMBOCYTOPENIA [None]
